FAERS Safety Report 25432576 (Version 1)
Quarter: 2025Q2

REPORT INFORMATION
  Report Type: Spontaneous
  Country: JP (occurrence: JP)
  Receive Date: 20250613
  Receipt Date: 20250613
  Transmission Date: 20250716
  Serious: Yes (Death, Other)
  Sender: MERCK SHARP & DOHME LLC
  Company Number: JP-MSD-M2023-46749

PATIENT
  Age: 70 Year
  Sex: Female

DRUGS (4)
  1. KEYTRUDA [Suspect]
     Active Substance: PEMBROLIZUMAB
  2. LENVATINIB MESYLATE [Suspect]
     Active Substance: LENVATINIB MESYLATE
     Indication: Uterine cancer
     Dosage: DOSE DESCRIPTION : 20 MILLIGRAM, QD?DAILY DOSE : 20 MILLIGRAM?CONCENTRATION: 10 MILLIGRAM?REGIMEN...
     Route: 048
     Dates: start: 20230403, end: 20230914
  3. LENVATINIB MESYLATE [Suspect]
     Active Substance: LENVATINIB MESYLATE
     Indication: Uterine cancer
     Dosage: DOSE DESCRIPTION : 14 MILLIGRAM, QOD?DAILY DOSE : 7 MILLIGRAM?REGIMEN DOSE : 14  MILLIGRAM
     Route: 048
     Dates: start: 20230915, end: 202310
  4. LENVATINIB MESYLATE [Suspect]
     Active Substance: LENVATINIB MESYLATE
     Indication: Uterine cancer
     Route: 048
     Dates: start: 202310, end: 20231027

REACTIONS (6)
  - Cardio-respiratory arrest [Fatal]
  - Vomiting [Fatal]
  - Seizure [Fatal]
  - Diarrhoea [Recovered/Resolved]
  - Decreased appetite [Recovered/Resolved]
  - Diarrhoea [Recovered/Resolved]

NARRATIVE: CASE EVENT DATE: 20230101
